FAERS Safety Report 21469451 (Version 3)
Quarter: 2022Q4

REPORT INFORMATION
  Report Type: Report from Study
  Country: CR (occurrence: CR)
  Receive Date: 20221018
  Receipt Date: 20221124
  Transmission Date: 20230112
  Serious: Yes (Other)
  Sender: FDA-Public Use
  Company Number: CR-SA-SAC20221013000319

PATIENT
  Age: 72 Year
  Sex: Male

DRUGS (1)
  1. INSULIN GLARGINE [Suspect]
     Active Substance: INSULIN GLARGINE
     Indication: Diabetes mellitus
     Dosage: 14 IU, QD
     Route: 058
     Dates: start: 2020

REACTIONS (7)
  - Blindness [Recovered/Resolved]
  - Eye haemorrhage [Recovered/Resolved]
  - Cataract [Unknown]
  - Scar [Unknown]
  - Post procedural infection [Recovered/Resolved]
  - Wound [Unknown]
  - Toe amputation [Unknown]

NARRATIVE: CASE EVENT DATE: 20211101
